FAERS Safety Report 5066786-0 (Version None)
Quarter: 2006Q3

REPORT INFORMATION
  Report Type: 
  Country: None (occurrence: None)
  Receive Date: 20060801
  Receipt Date: 20060720
  Transmission Date: 20061208
  Serious: Yes (Hospitalization)
  Sender: FDA-Public Use
  Company Number: CA-ROCHE-456609

PATIENT
  Age: 60 Year
  Sex: Female

DRUGS (4)
  1. XENICAL [Suspect]
     Indication: WEIGHT CONTROL
     Route: 048
     Dates: start: 20060316, end: 20060415
  2. XENICAL [Suspect]
     Route: 048
     Dates: start: 20060503, end: 20060620
  3. HYDROCHLOROTHIAZIDE [Concomitant]
     Indication: FLUID RETENTION
     Route: 048
     Dates: start: 20050615, end: 20060701
  4. PARIET [Concomitant]
     Route: 048
     Dates: start: 20040615, end: 20060421

REACTIONS (4)
  - CHEST PAIN [None]
  - CHOLELITHIASIS [None]
  - CONDITION AGGRAVATED [None]
  - DRUG INEFFECTIVE [None]
